FAERS Safety Report 5087223-6 (Version None)
Quarter: 2006Q3

REPORT INFORMATION
  Report Type: 
  Country: None (occurrence: None)
  Receive Date: 20060821
  Receipt Date: 20060803
  Transmission Date: 20061208
  Serious: Yes (Other)
  Sender: FDA-Public Use
  Company Number: B0433820A

PATIENT
  Age: 54 Year
  Sex: Male

DRUGS (4)
  1. MYLERAN [Suspect]
     Indication: DRUG USE FOR UNKNOWN INDICATION
     Dosage: 12.8 MG/KG INTRAVENOUS
     Route: 042
  2. CYCLOPHOSPHAMIDE [Suspect]
     Indication: DRUG USE FOR UNKNOWN INDICATION
     Dosage: 120 MG/KG INTRAVENOUS
     Route: 042
  3. METHOTREXATE [Suspect]
     Dosage: 45 MG/M2 INTRAVENOUS
     Route: 042
  4. CYCLOSPORINE [Suspect]
     Indication: DRUG USE FOR UNKNOWN INDICATION
     Dosage: 1.5 MG/KG  SEE DOSAGE TEXT

REACTIONS (2)
  - CEREBRAL ATROPHY [None]
  - OEDEMA [None]
